FAERS Safety Report 9308861 (Version 2)
Quarter: 2013Q3

REPORT INFORMATION
  Report Type: Spontaneous
  Country: US (occurrence: US)
  Receive Date: 20130524
  Receipt Date: 20130725
  Transmission Date: 20140515
  Serious: No
  Sender: FDA-Public Use
  Company Number: US-MERCK-1305USA011745

PATIENT
  Age: 77 Year
  Sex: Male

DRUGS (3)
  1. JANUMET [Suspect]
     Indication: BLOOD GLUCOSE
     Dosage: 50/500 MG, TAKEN TWICE A DAY THROUGH MORNING AND EVENING DOSES
     Route: 048
     Dates: start: 200505, end: 20130516
  2. FLOMAX (MORNIFLUMATE) [Concomitant]
  3. LOTREL [Concomitant]

REACTIONS (1)
  - Pancreatic cyst [Unknown]
